FAERS Safety Report 8964178 (Version 1)
Quarter: 2012Q4

REPORT INFORMATION
  Report Type: 
  Country: US (occurrence: US)
  Receive Date: 20121214
  Receipt Date: 20121214
  Transmission Date: 20130627
  Serious: No
  Sender: FDA-Public Use
  Company Number: US-PFIZER INC-2012311940

PATIENT
  Age: 61 Year
  Sex: Female
  Weight: 86.17 kg

DRUGS (4)
  1. ADVIL [Suspect]
     Indication: ARTHRITIS
     Dosage: 400 mg (two tablets of 200mg), 2x/day
     Route: 048
     Dates: start: 2012
  2. SYNTHROID [Concomitant]
     Indication: THYROID DISORDER
     Dosage: UNK
  3. OSTEO BI-FLEX [Concomitant]
     Dosage: UNK
  4. CALCIUM [Concomitant]
     Dosage: UNK

REACTIONS (2)
  - Thyroid function test abnormal [Unknown]
  - Hair colour changes [Unknown]
